FAERS Safety Report 9783069 (Version 5)
Quarter: 2015Q1

REPORT INFORMATION
  Report Type: Report from Study
  Country: US (occurrence: US)
  Receive Date: 20131226
  Receipt Date: 20150130
  Transmission Date: 20150721
  Serious: Yes (Hospitalization)
  Sender: FDA-Public Use
  Company Number: US-SA-2013SA131862

PATIENT
  Age: 32 Year
  Sex: Female

DRUGS (2)
  1. AUBAGIO [Suspect]
     Active Substance: TERIFLUNOMIDE
     Indication: MULTIPLE SCLEROSIS
     Route: 048
     Dates: start: 20131203
  2. AUBAGIO [Suspect]
     Active Substance: TERIFLUNOMIDE
     Indication: MULTIPLE SCLEROSIS
     Route: 048
     Dates: start: 20131021, end: 20131202

REACTIONS (10)
  - Stress [Unknown]
  - Facial spasm [Unknown]
  - Muscle twitching [Unknown]
  - Alopecia [Unknown]
  - Muscular weakness [Unknown]
  - Multiple sclerosis relapse [Unknown]
  - Unevaluable event [Unknown]
  - Fatigue [Unknown]
  - Hypoaesthesia [Unknown]
  - Feeling hot [Unknown]
